FAERS Safety Report 13458386 (Version 1)
Quarter: 2017Q2

REPORT INFORMATION
  Report Type: Spontaneous
  Country: US (occurrence: US)
  Receive Date: 20170419
  Receipt Date: 20170419
  Transmission Date: 20170830
  Serious: Yes (Other)
  Sender: FDA-Public Use
  Company Number: ALCN2017US002750

PATIENT
  Age: 68 Year
  Sex: Female
  Weight: 76.19 kg

DRUGS (14)
  1. OFLOXACINE [Concomitant]
     Active Substance: OFLOXACIN
     Indication: PREOPERATIVE CARE
     Route: 065
  2. BSS [Suspect]
     Active Substance: CALCIUM CHLORIDE\MAGNESIUM CHLORIDE\POTASSIUM CHLORIDE\SODIUM ACETATE\SODIUM CHLORIDE\SODIUM CITRATE
     Indication: EYE IRRIGATION
     Route: 047
  3. VANCOMYCIN [Concomitant]
     Active Substance: VANCOMYCIN
     Indication: POSTOPERATIVE CARE
     Route: 065
  4. EPINEPHRINE. [Suspect]
     Active Substance: EPINEPHRINE
     Indication: EYE IRRIGATION
     Route: 065
  5. KETOROLAC [Concomitant]
     Active Substance: KETOROLAC\KETOROLAC TROMETHAMINE
     Indication: PREOPERATIVE CARE
     Route: 065
  6. LIDOCAINE. [Concomitant]
     Active Substance: LIDOCAINE
     Indication: PREOPERATIVE CARE
     Route: 021
  7. CEFTAZIDIME. [Concomitant]
     Active Substance: CEFTAZIDIME
     Indication: POSTOPERATIVE CARE
     Route: 065
  8. CYCLOPENTOLATE HYDROCHLORIDE. [Concomitant]
     Active Substance: CYCLOPENTOLATE HYDROCHLORIDE
     Indication: PREOPERATIVE CARE
     Route: 065
  9. PHENYLEPHRINE HYDROCHLORIDE. [Concomitant]
     Active Substance: PHENYLEPHRINE HYDROCHLORIDE
     Indication: PREOPERATIVE CARE
     Route: 065
  10. ATROPA [Concomitant]
     Indication: POSTOPERATIVE CARE
     Route: 065
  11. BETADINE [Suspect]
     Active Substance: POVIDONE-IODINE
     Indication: EYE IRRIGATION
     Route: 047
  12. PRED FORTE [Concomitant]
     Active Substance: PREDNISOLONE ACETATE
     Indication: POSTOPERATIVE CARE
     Route: 065
  13. TROPICAMIDE. [Concomitant]
     Active Substance: TROPICAMIDE
     Indication: PREOPERATIVE CARE
     Route: 065
  14. VIGAMOX [Concomitant]
     Active Substance: MOXIFLOXACIN HYDROCHLORIDE
     Indication: POSTOPERATIVE CARE
     Route: 065

REACTIONS (4)
  - Toxic anterior segment syndrome [Recovered/Resolved]
  - Corneal oedema [Recovered/Resolved]
  - Visual impairment [Recovered/Resolved]
  - Hypopyon [Recovered/Resolved]

NARRATIVE: CASE EVENT DATE: 20161215
